FAERS Safety Report 11771412 (Version 2)
Quarter: 2015Q4

REPORT INFORMATION
  Report Type: Spontaneous
  Country: DE (occurrence: DE)
  Receive Date: 20151124
  Receipt Date: 20151203
  Transmission Date: 20160304
  Serious: Yes (Hospitalization, Other)
  Sender: FDA-Public Use
  Company Number: DE-009507513-1511DEU012092

PATIENT
  Age: 67 Year
  Sex: Male
  Weight: 70 kg

DRUGS (7)
  1. XELEVIA [Suspect]
     Active Substance: SITAGLIPTIN PHOSPHATE
     Dosage: 100 MG, ONCE A DAY
     Route: 048
     Dates: start: 20151103, end: 20151109
  2. DICLOFENAC [Concomitant]
     Active Substance: DICLOFENAC
     Indication: PAIN
     Dosage: TOTAL DAILY DOSE: 25 MG, 12.5 MG AS NEEDED TWICE A DAY
     Route: 048
     Dates: start: 201505
  3. VOCADO HCT [Concomitant]
     Active Substance: AMLODIPINE BESYLATE\HYDROCHLOROTHIAZIDE\OLMESARTAN MEDOXOMIL
     Indication: HYPERTENSION
     Dosage: 40/5/25 MG, ONCE A DAY
     Route: 048
  4. XELEVIA [Suspect]
     Active Substance: SITAGLIPTIN PHOSPHATE
     Indication: DIABETES MELLITUS
     Dosage: 100 MG, ONCE A DAY
     Route: 048
     Dates: start: 20150907, end: 20151013
  5. AMOXICILLIN. [Concomitant]
     Active Substance: AMOXICILLIN
     Indication: NASOPHARYNGITIS
     Dosage: 1000 MG, TWICE A DAY
     Route: 048
     Dates: start: 20151103, end: 20151109
  6. METOHEXAL [Concomitant]
     Active Substance: METOPROLOL SUCCINATE
     Indication: HYPERTENSION
     Dosage: 95 MG, TWICE A DAY
     Route: 048
  7. PANTOPRAZOLE [Concomitant]
     Active Substance: PANTOPRAZOLE SODIUM
     Indication: PROPHYLAXIS
     Dosage: 40 MG, ONCE A DAY
     Route: 048

REACTIONS (12)
  - Hyperlipasaemia [Unknown]
  - Bradycardia [Unknown]
  - Bronchitis [Unknown]
  - Depression [Unknown]
  - Blood creatinine increased [Recovered/Resolved]
  - Hypokalaemia [Unknown]
  - Gamma-glutamyltransferase increased [Unknown]
  - Acute prerenal failure [Unknown]
  - Diarrhoea [Unknown]
  - Metabolic acidosis [Recovered/Resolved]
  - Dehydration [Unknown]
  - International normalised ratio abnormal [Recovered/Resolved]

NARRATIVE: CASE EVENT DATE: 201510
